FAERS Safety Report 24436977 (Version 2)
Quarter: 2024Q4

REPORT INFORMATION
  Report Type: Spontaneous
  Country: CA (occurrence: CA)
  Receive Date: 20241015
  Receipt Date: 20241230
  Transmission Date: 20250115
  Serious: Yes (Other)
  Sender: CELLTRION
  Company Number: CA-PFIZER INC-PV202400130519

PATIENT

DRUGS (1)
  1. INFLECTRA [Suspect]
     Active Substance: INFLIXIMAB-DYYB
     Indication: Ankylosing spondylitis
     Dosage: 500 MG, EVERY 4-6 WEEKS
     Route: 042
     Dates: start: 20240912

REACTIONS (2)
  - Bone graft [Unknown]
  - Tooth extraction [Unknown]

NARRATIVE: CASE EVENT DATE: 20241001
